FAERS Safety Report 4818850-6 (Version None)
Quarter: 2005Q4

REPORT INFORMATION
  Report Type: 
  Country: None (occurrence: None)
  Receive Date: 20051101
  Receipt Date: 20051019
  Transmission Date: 20060501
  Serious: Yes (Hospitalization)
  Sender: FDA-Public Use
  Company Number: MEDI-0003753

PATIENT
  Age: 44 Year
  Sex: Male
  Weight: 76.1589 kg

DRUGS (12)
  1. ETHYOL [Suspect]
     Indication: CHEMOTHERAPY
     Dosage: 500 MG, 5 IN 1 WK, SUBCUTANEOUS
     Route: 058
     Dates: start: 20050912, end: 20051017
  2. ETHYOL [Suspect]
     Indication: RADIOTHERAPY
     Dosage: 500 MG, 5 IN 1 WK, SUBCUTANEOUS
     Route: 058
     Dates: start: 20050912, end: 20051017
  3. RADIATION THERAPY [Concomitant]
  4. CISPLATIN [Concomitant]
  5. ZOFRAN [Concomitant]
  6. REGLAN [Concomitant]
  7. GLUTAMINE [Concomitant]
  8. BANOPHEN (DIPHENHYDRAMINE HYDROCHLORIDE) [Concomitant]
  9. FENTANYL [Concomitant]
  10. MAALOX (MAGNESIUM HYDROXIDE, ALUMINIUM HYDROXIDE GEL) [Concomitant]
  11. LIDOCAINE  VISCOUS (LIDOCAINE HYDROCHLORIDE) [Concomitant]
  12. BENADRYL [Concomitant]

REACTIONS (6)
  - ERYTHEMA [None]
  - ORAL MUCOSA EROSION [None]
  - POST PROCEDURAL NAUSEA [None]
  - PYREXIA [None]
  - RASH PAPULAR [None]
  - RASH PRURITIC [None]
